FAERS Safety Report 24332904 (Version 1)
Quarter: 2024Q3

REPORT INFORMATION
  Report Type: Report from Study
  Country: GB (occurrence: GB)
  Receive Date: 20240918
  Receipt Date: 20240918
  Transmission Date: 20241017
  Serious: Yes (Other)
  Sender: TEVA
  Company Number: GB-TEVA-VS-3242576

PATIENT
  Age: 71 Year
  Sex: Female

DRUGS (1)
  1. OCTREOTIDE [Suspect]
     Active Substance: OCTREOTIDE\OCTREOTIDE ACETATE
     Indication: Product used for unknown indication
     Route: 065

REACTIONS (3)
  - Dyspnoea exertional [Unknown]
  - Pallor [Unknown]
  - Mental fatigue [Unknown]
